FAERS Safety Report 7505627-6 (Version None)
Quarter: 2011Q2

REPORT INFORMATION
  Report Type: 
  Country: None (occurrence: None)
  Receive Date: 20110526
  Receipt Date: 20110520
  Transmission Date: 20111010
  Serious: Yes (Other)
  Sender: FDA-Public Use
  Company Number: US-PFIZER INC-2011109064

PATIENT

DRUGS (1)
  1. DETROL LA [Suspect]
     Dosage: UNK

REACTIONS (1)
  - CEREBRAL HAEMORRHAGE [None]
